FAERS Safety Report 21588900 (Version 2)
Quarter: 2023Q4

REPORT INFORMATION
  Report Type: Spontaneous
  Country: US (occurrence: US)
  Receive Date: 20221114
  Receipt Date: 20231102
  Transmission Date: 20240110
  Serious: No
  Sender: FDA-Public Use
  Company Number: US-PFIZER INC-202101375532

PATIENT
  Age: 89 Year
  Sex: Female
  Weight: 52.62 kg

DRUGS (2)
  1. ESTRING [Suspect]
     Active Substance: ESTRADIOL
     Dosage: 7.5MCG/24, QUANTITY FOR 90 DAYS: #1
     Route: 067
  2. ESTRING [Suspect]
     Active Substance: ESTRADIOL
     Dosage: 7.5 UG (ESTRING 7.5 MCG/24 HOUR RING, VAGINAL 1 RING PER VAGINA Q (EVERY) 3M (3 MONTH))
     Route: 067

REACTIONS (2)
  - Product prescribing error [Unknown]
  - Weight decreased [Unknown]
